FAERS Safety Report 7471491-7 (Version None)
Quarter: 2011Q2

REPORT INFORMATION
  Report Type: 
  Country: None (occurrence: None)
  Receive Date: 20110511
  Receipt Date: 20110503
  Transmission Date: 20111010
  Serious: No
  Sender: FDA-Public Use
  Company Number: US-BIOGENIDEC-2011BI016927

PATIENT
  Age: 40 Year
  Sex: Female

DRUGS (1)
  1. TYSABRI [Suspect]
     Indication: MULTIPLE SCLEROSIS
     Route: 042
     Dates: start: 20110303

REACTIONS (7)
  - ADVERSE DRUG REACTION [None]
  - HYPERTENSION [None]
  - PAIN [None]
  - CHILLS [None]
  - PYREXIA [None]
  - MUSCLE CONTRACTIONS INVOLUNTARY [None]
  - PALPITATIONS [None]
